FAERS Safety Report 8277840-4 (Version None)
Quarter: 2012Q2

REPORT INFORMATION
  Report Type: 
  Country: None (occurrence: None)
  Receive Date: 20120412
  Receipt Date: 20120409
  Transmission Date: 20120825
  Serious: Yes (Other)
  Sender: FDA-Public Use
  Company Number: US-PFIZER INC-2012085891

PATIENT
  Sex: Female
  Weight: 63.492 kg

DRUGS (10)
  1. LIPITOR [Suspect]
     Indication: BLOOD CHOLESTEROL INCREASED
     Dosage: 40 MG, 1X/DAY
     Route: 048
     Dates: start: 20080701, end: 20120404
  2. LISINOPRIL [Concomitant]
     Indication: HYPERTENSION
     Dosage: UNK
     Dates: start: 20080708, end: 20120101
  3. PLAVIX [Concomitant]
     Dosage: UNK
  4. ACETYLSALICYLIC ACID [Concomitant]
     Indication: STENT PLACEMENT
  5. ACETYLSALICYLIC ACID [Concomitant]
     Indication: CORONARY ARTERY DISEASE
     Dosage: 162 MG, DAILY
     Dates: start: 20080701
  6. CITRACAL [Concomitant]
     Dosage: 500 MG/250 IU TWO TIMES A DAY
  7. LIPITOR [Suspect]
     Indication: CORONARY ARTERY DISEASE
  8. ATENOLOL [Concomitant]
     Indication: HYPERTENSION
     Dosage: UNK
     Dates: start: 20080701, end: 20120101
  9. PREVACID [Suspect]
     Indication: GASTRITIS
     Dosage: UNK
     Dates: start: 20120201, end: 20120201
  10. METFORMIN [Concomitant]
     Dosage: UNK

REACTIONS (10)
  - RASH [None]
  - CARDIAC DISORDER [None]
  - GASTRIC DISORDER [None]
  - DERMATITIS ALLERGIC [None]
  - EOSINOPHIL COUNT INCREASED [None]
  - GASTRITIS [None]
  - MALAISE [None]
  - FATIGUE [None]
  - URTICARIA [None]
  - REFLUX GASTRITIS [None]
